FAERS Safety Report 8135730-1 (Version None)
Quarter: 2012Q1

REPORT INFORMATION
  Report Type: 
  Country: None (occurrence: None)
  Receive Date: 20120214
  Receipt Date: 20120210
  Transmission Date: 20120608
  Serious: Yes (Death, Hospitalization)
  Sender: FDA-Public Use
  Company Number: US-B.I. PHARMACEUTICALS,INC./RIDGEFIELD-2011-BP-28158BP

PATIENT
  Sex: Female

DRUGS (13)
  1. LEVOTHYROXINE SODIUM [Concomitant]
  2. BUDESONIDE [Concomitant]
  3. NEXIUM [Concomitant]
     Dates: start: 20110225
  4. AZITHROMYCIN [Concomitant]
     Dates: start: 20110801
  5. PRAVASTATIN [Concomitant]
  6. DOXYCYCLINE [Concomitant]
     Dates: start: 20110629
  7. CIPROFLOXACIN [Concomitant]
     Dates: start: 20111107
  8. COMBIVENT [Concomitant]
     Dates: start: 20111122
  9. LASIX [Concomitant]
  10. PRADAXA [Suspect]
     Indication: ATRIAL FIBRILLATION
     Dosage: 300 MG
     Route: 048
     Dates: start: 20101110
  11. PROZAC [Concomitant]
  12. TRAMADOL HYDROCHLORIDE AND ACETAMINOPHEN [Concomitant]
     Dates: start: 20110304
  13. SPIRONOLACTONE [Concomitant]

REACTIONS (3)
  - BLEEDING VARICOSE VEIN [None]
  - CREATININE RENAL CLEARANCE DECREASED [None]
  - EXSANGUINATION [None]
